FAERS Safety Report 23263073 (Version 1)
Quarter: 2023Q4

REPORT INFORMATION
  Report Type: Spontaneous
  Country: US (occurrence: None)
  Receive Date: 20231205
  Receipt Date: 20231205
  Transmission Date: 20240110
  Serious: Yes (Hospitalization)
  Sender: FDA-Public Use
  Company Number: None

PATIENT
  Sex: Female
  Weight: 49 kg

DRUGS (2)
  1. AZACITIDINE [Suspect]
     Active Substance: AZACITIDINE
     Dates: end: 20231016
  2. VENETOCLAX [Suspect]
     Active Substance: VENETOCLAX
     Dates: end: 20231016

REACTIONS (12)
  - Gastrointestinal haemorrhage [None]
  - Nausea [None]
  - Abdominal pain [None]
  - Fatigue [None]
  - Malaise [None]
  - Dizziness [None]
  - Chills [None]
  - Pyrexia [None]
  - Vomiting [None]
  - Alpha haemolytic streptococcal infection [None]
  - Haemoglobin decreased [None]
  - Pneumonia [None]

NARRATIVE: CASE EVENT DATE: 20231111
